FAERS Safety Report 22085184 (Version 3)
Quarter: 2024Q1

REPORT INFORMATION
  Report Type: Report from Study
  Country: US (occurrence: US)
  Receive Date: 20230310
  Receipt Date: 20240307
  Transmission Date: 20240409
  Serious: Yes (Other)
  Sender: FDA-Public Use
  Company Number: US-JAZZ PHARMACEUTICALS-2023-US-005471

PATIENT
  Sex: Female
  Weight: 40.8 kg

DRUGS (2)
  1. EPIDIOLEX [Suspect]
     Active Substance: CANNABIDIOL
     Indication: Product used for unknown indication
     Dosage: 3.5 MILLILITER, BID
     Route: 048
  2. EPIDIOLEX [Suspect]
     Active Substance: CANNABIDIOL
     Dosage: UNK

REACTIONS (2)
  - Vomiting [Unknown]
  - Vomiting [Unknown]
